FAERS Safety Report 5158806-X (Version None)
Quarter: 2006Q4

REPORT INFORMATION
  Report Type: 
  Country: None (occurrence: None)
  Receive Date: 20061128
  Receipt Date: 20061115
  Transmission Date: 20070319
  Serious: Yes (Hospitalization)
  Sender: FDA-Public Use
  Company Number: US-ELI_LILLY_AND_COMPANY-US200611003249

PATIENT
  Age: 75 Year
  Sex: Female

DRUGS (4)
  1. FORTEO [Suspect]
     Indication: OSTEOPOROSIS
     Dosage: UNK, UNK
     Dates: start: 20041101, end: 20060501
  2. ARAVA [Concomitant]
     Dosage: UNK UNK, UNKNOWN
  3. BIO-AMPI [Concomitant]
     Indication: OSTEOPOROSIS
     Dosage: UNK UNK, UNKNOWN
  4. OXYCODONE HCL [Concomitant]
     Indication: PAIN
     Dosage: UNK UNK, UNKNOWN

REACTIONS (1)
  - BLOOD ALKALINE PHOSPHATASE INCREASED [None]
